FAERS Safety Report 9033237 (Version 1)
Quarter: 2013Q1

REPORT INFORMATION
  Report Type: Spontaneous
  Country: US (occurrence: US)
  Receive Date: 20130128
  Receipt Date: 20130128
  Transmission Date: 20140127
  Serious: No
  Sender: FDA-Public Use
  Company Number: US-009507513-1301USA012804

PATIENT
  Age: 80 Year
  Sex: Male
  Weight: 81.63 kg

DRUGS (7)
  1. MIRALAX [Suspect]
     Indication: CONSTIPATION
     Dosage: 17 G, BID
     Route: 048
     Dates: start: 20120911
  2. MIRALAX [Suspect]
     Indication: HERNIA REPAIR
  3. MIRALAX [Suspect]
     Indication: MEDICAL OBSERVATION
  4. VICODIN [Concomitant]
     Indication: BACK PAIN
     Dosage: UNK, TID
  5. VICODIN [Concomitant]
     Indication: NECK PAIN
  6. ZYLOPRIM [Concomitant]
     Indication: GOUT
     Dosage: 50 MG, QD
  7. METOPROLOL [Concomitant]
     Indication: HYPOTENSION
     Dosage: MG

REACTIONS (3)
  - Overdose [Unknown]
  - Inappropriate schedule of drug administration [Unknown]
  - Incorrect drug administration duration [Unknown]
